FAERS Safety Report 7734479-4 (Version None)
Quarter: 2011Q3

REPORT INFORMATION
  Report Type: 
  Country: None (occurrence: None)
  Receive Date: 20110907
  Receipt Date: 20110824
  Transmission Date: 20111222
  Serious: Yes (Death, Hospitalization)
  Sender: FDA-Public Use
  Company Number: US-GLAXOSMITHKLINE-A0747320A

PATIENT
  Age: 68 Year
  Sex: Male

DRUGS (7)
  1. HUMULIN R [Concomitant]
  2. TRICOR [Concomitant]
  3. ENALAPRIL MALEATE [Concomitant]
  4. GLYBURIDE [Concomitant]
  5. AVANDIA [Suspect]
     Indication: TYPE 2 DIABETES MELLITUS
     Dosage: 8MG PER DAY
     Route: 048
  6. DIOVAN [Concomitant]
  7. GLUCOPHAGE [Concomitant]

REACTIONS (4)
  - CARDIAC FAILURE CONGESTIVE [None]
  - CEREBROVASCULAR ACCIDENT [None]
  - MYOCARDIAL INFARCTION [None]
  - CEREBRAL HAEMORRHAGE [None]
